FAERS Safety Report 22988414 (Version 6)
Quarter: 2024Q2

REPORT INFORMATION
  Report Type: Report from Study
  Country: CO (occurrence: CO)
  Receive Date: 20230926
  Receipt Date: 20240405
  Transmission Date: 20240716
  Serious: Yes (Other)
  Sender: FDA-Public Use
  Company Number: CO-ABBVIE-5414809

PATIENT
  Sex: Female
  Weight: 62 kg

DRUGS (2)
  1. SKYRIZI [Suspect]
     Active Substance: RISANKIZUMAB-RZAA
     Indication: Psoriasis
     Dosage: FORM STRENGTH 75 MILLIGRAM
     Route: 058
     Dates: start: 20220906, end: 20230502
  2. SKYRIZI [Suspect]
     Active Substance: RISANKIZUMAB-RZAA
     Dosage: FORM STRENGTH: 150 MILLIGRAM
     Route: 058
     Dates: start: 20230927, end: 20230927

REACTIONS (15)
  - Accessory breast [Recovered/Resolved]
  - Wound dehiscence [Recovered/Resolved]
  - Post procedural inflammation [Recovered/Resolved]
  - Axillary mass [Unknown]
  - Crying [Not Recovered/Not Resolved]
  - Breast pain [Unknown]
  - Breast cyst [Unknown]
  - Emotional disorder [Recovered/Resolved]
  - Arthralgia [Not Recovered/Not Resolved]
  - Benign neoplasm [Recovered/Resolved]
  - Anxiety [Not Recovered/Not Resolved]
  - Depression [Not Recovered/Not Resolved]
  - Fear [Not Recovered/Not Resolved]
  - Nausea [Not Recovered/Not Resolved]
  - Cough [Not Recovered/Not Resolved]

NARRATIVE: CASE EVENT DATE: 20230101
